FAERS Safety Report 6373442-5 (Version None)
Quarter: 2009Q3

REPORT INFORMATION
  Report Type: 
  Country: None (occurrence: None)
  Receive Date: 20090924
  Receipt Date: 20090310
  Transmission Date: 20100115
  Serious: Yes (Hospitalization)
  Sender: FDA-Public Use
  Company Number: US-ASTRAZENECA-2009UW06249

PATIENT
  Age: 459 Month
  Sex: Female

DRUGS (4)
  1. SEROQUEL [Suspect]
     Indication: BIPOLAR DISORDER
     Route: 048
  2. LITHIUM [Suspect]
     Indication: BIPOLAR DISORDER
  3. COGENTIN [Suspect]
     Indication: BIPOLAR DISORDER
  4. NAVANE [Suspect]
     Indication: BIPOLAR DISORDER

REACTIONS (1)
  - ANXIETY [None]
